FAERS Safety Report 5842852-4 (Version None)
Quarter: 2008Q3

REPORT INFORMATION
  Report Type: 
  Country: None (occurrence: None)
  Receive Date: 20080731
  Receipt Date: 20080428
  Transmission Date: 20090109
  Serious: No
  Sender: FDA-Public Use
  Company Number: US200801007014

PATIENT
  Age: 59 Year
  Sex: Female
  Weight: 135.6 kg

DRUGS (10)
  1. BYETTA [Suspect]
     Indication: TYPE 2 DIABETES MELLITUS
     Dosage: 5 UG, 2/D, SUBCUTANEOUS ; 5 UG, DAILY (1/D), SUBCUTANEOUS
     Route: 058
     Dates: start: 20071001, end: 20071001
  2. BYETTA [Suspect]
     Indication: TYPE 2 DIABETES MELLITUS
     Dosage: 5 UG, 2/D, SUBCUTANEOUS ; 5 UG, DAILY (1/D), SUBCUTANEOUS
     Route: 058
     Dates: start: 20071001
  3. STARLIX [Concomitant]
  4. PROMETRIUM [Concomitant]
  5. NORVASC [Concomitant]
  6. BENICAR [Concomitant]
  7. VITAMINS NOS (VITAMINS NOS) [Concomitant]
  8. HYDROXOCOBALAMIN (HYDROXOCOBALAMIN) [Concomitant]
  9. AMINO ACIDS [Concomitant]
  10. ALISKIREN (ALISKIREN) [Concomitant]

REACTIONS (6)
  - ABDOMINAL DISTENSION [None]
  - ANOREXIA [None]
  - FLATULENCE [None]
  - INJECTION SITE HAEMORRHAGE [None]
  - NAUSEA [None]
  - WEIGHT DECREASED [None]
